FAERS Safety Report 14272792 (Version 1)
Quarter: 2017Q4

REPORT INFORMATION
  Report Type: Spontaneous
  Country: US (occurrence: None)
  Receive Date: 20171212
  Receipt Date: 20171212
  Transmission Date: 20180321
  Serious: Yes (Hospitalization)
  Sender: FDA-Public Use
  Company Number: None

PATIENT
  Age: 69 Year
  Sex: Female
  Weight: 73 kg

DRUGS (1)
  1. XELODA [Suspect]
     Active Substance: CAPECITABINE
     Dosage: 1500MG TAKEN TWICE A DAY (3000MG DAILY)
     Dates: start: 20170803, end: 20170912

REACTIONS (3)
  - Eating disorder [None]
  - Pain [None]
  - Impaired self-care [None]

NARRATIVE: CASE EVENT DATE: 20171121
